FAERS Safety Report 6000502-0 (Version None)
Quarter: 2008Q4

REPORT INFORMATION
  Report Type: 
  Country: None (occurrence: None)
  Receive Date: 20081215
  Receipt Date: 20080502
  Transmission Date: 20090506
  Serious: No
  Sender: FDA-Public Use
  Company Number: US-BAYER-200810116BCC

PATIENT
  Sex: Male
  Weight: 86 kg

DRUGS (3)
  1. ALEVE (CAPLET) [Suspect]
     Indication: HYPOAESTHESIA
     Dosage: UNIT DOSE: 220 MG
     Route: 048
     Dates: start: 20010101
  2. VIACTIV [Concomitant]
  3. ONE A DAY MAXIMUM [Concomitant]

REACTIONS (2)
  - HAND DEFORMITY [None]
  - HYPOAESTHESIA [None]
